FAERS Safety Report 19972438 (Version 1)
Quarter: 2021Q4

REPORT INFORMATION
  Report Type: Spontaneous
  Country: ES (occurrence: ES)
  Receive Date: 20211019
  Receipt Date: 20211019
  Transmission Date: 20220303
  Serious: Yes (Hospitalization, Other)
  Sender: FDA-Public Use
  Company Number: ES-ABBVIE-21K-144-4117077-00

PATIENT
  Age: 26 Year
  Sex: Female

DRUGS (3)
  1. VALPROIC ACID [Suspect]
     Active Substance: VALPROIC ACID
     Indication: Seizure
     Route: 065
  2. CARBAMAZEPINE [Suspect]
     Active Substance: CARBAMAZEPINE
     Indication: Partial seizures with secondary generalisation
     Route: 065
  3. PHENYTOIN [Suspect]
     Active Substance: PHENYTOIN
     Indication: Seizure
     Route: 065
     Dates: start: 200102

REACTIONS (10)
  - General physical health deterioration [Unknown]
  - Oliguria [Unknown]
  - Proteinuria [Unknown]
  - Drug reaction with eosinophilia and systemic symptoms [Unknown]
  - Tubulointerstitial nephritis [Unknown]
  - Acute kidney injury [Unknown]
  - Pruritus [Unknown]
  - Rash [Unknown]
  - Pruritus [Unknown]
  - Partial seizures [Unknown]
